FAERS Safety Report 6575948-2 (Version None)
Quarter: 2010Q1

REPORT INFORMATION
  Report Type: 
  Country: None (occurrence: None)
  Receive Date: 20100209
  Receipt Date: 20100127
  Transmission Date: 20100710
  Serious: Yes (Hospitalization)
  Sender: FDA-Public Use
  Company Number: US-ELI_LILLY_AND_COMPANY-US201002000916

PATIENT
  Sex: Male

DRUGS (11)
  1. FORTEO [Suspect]
     Indication: OSTEOPOROSIS
     Dosage: 20 UG, DAILY (1/D)
     Dates: start: 20090101
  2. FORTEO [Suspect]
     Dosage: 20 UG, DAILY (1/D)
  3. ARICEPT [Concomitant]
     Dosage: 10 MG, EACH MORNING
  4. FLOMAX [Concomitant]
     Dosage: 0.4 MG, EACH MORNING
  5. PREDNISONE [Concomitant]
     Dosage: 5 MG, DAILY (1/D)
  6. PROTONIX /01263201/ [Concomitant]
     Dosage: 40 MG, DAILY (1/D)
  7. VALIUM [Concomitant]
     Dosage: 10 MG, 3/D
  8. LORTAB [Concomitant]
     Dosage: 10/500 MG
  9. LASIX [Concomitant]
     Dosage: 20 MG, DAILY (1/D)
  10. OYSTER SHELL CALCIUM WITH VITAMIN D/01675501/ [Concomitant]
     Dosage: UNK, 2/D
  11. DESYREL [Concomitant]
     Dosage: 100 MG, UNK

REACTIONS (4)
  - INJECTION SITE HAEMATOMA [None]
  - INJECTION SITE PAIN [None]
  - KIDNEY INFECTION [None]
  - LUNG INFECTION [None]
